FAERS Safety Report 4434083-X (Version None)
Quarter: 2004Q3

REPORT INFORMATION
  Report Type: 
  Country: None (occurrence: None)
  Receive Date: 20040825
  Receipt Date: 20040809
  Transmission Date: 20050211
  Serious: Yes (Life-Threatening, Hospitalization, Other)
  Sender: FDA-Public Use
  Company Number: USA040874915

PATIENT
  Age: 63 Year
  Sex: Female
  Weight: 90 kg

DRUGS (4)
  1. HUMULIN 70/30 [Suspect]
     Dosage: 200 U DAY
  2. HUMULIN R [Suspect]
  3. METFORMIN HCL [Concomitant]
  4. COUMADIN [Concomitant]

REACTIONS (9)
  - BREAST CANCER FEMALE [None]
  - CARDIAC ANEURYSM [None]
  - CYST [None]
  - GASTRIC DISORDER [None]
  - IMPLANTABLE DEFIBRILLATOR INSERTION [None]
  - PAIN [None]
  - PAIN IN EXTREMITY [None]
  - VASCULAR OCCLUSION [None]
  - VISUAL ACUITY REDUCED [None]
